FAERS Safety Report 10235502 (Version 1)
Quarter: 2014Q1

REPORT INFORMATION
  Report Type: Spontaneous
  Country: US (occurrence: None)
  Receive Date: 20140306
  Receipt Date: 20140306
  Transmission Date: 20141002
  Serious: Yes (Other)
  Sender: FDA-Public Use
  Company Number: 163-21880-13021959

PATIENT
  Age: 65 Year
  Sex: Female
  Weight: 40.82 kg

DRUGS (12)
  1. REVLIMID (LENALIDOMIDE) (5 MILLIGRAM, CAPSULES) [Suspect]
     Indication: PLASMA CELL MYELOMA
     Route: 048
     Dates: start: 20120213
  2. ACYCLOVIR (ACICLOVIR) (ACICLOVIR) [Concomitant]
  3. ASPIRIN (ACETYLSALICYLIC ACID) [Concomitant]
  4. DIALYVITE (DIALYVITE) [Concomitant]
  5. METOPROLOL TARTRATE (METOPROLOL TARTRATE) [Concomitant]
  6. PROCHLORPERAZINE (PROCHLORPERAZINE) [Concomitant]
  7. PROCRIT (ERYTHROPOIETIN) [Concomitant]
  8. PROTONIX [Concomitant]
  9. TUMS (CALCIUM CARBONATE) [Concomitant]
  10. VITAMIN D3 (COLECALCIFEROL) [Concomitant]
  11. MULTIVITAMINS (MULTIVITAMINS) [Concomitant]
  12. COMPAZINE (PROCHLORPERAZINE EDISYLATE) [Concomitant]

REACTIONS (7)
  - Thirst [None]
  - Asthenia [None]
  - Diarrhoea [None]
  - Constipation [None]
  - Dysgeusia [None]
  - Decreased appetite [None]
  - Clostridium difficile infection [None]
